FAERS Safety Report 15411694 (Version 2)
Quarter: 2018Q4

REPORT INFORMATION
  Report Type: Spontaneous
  Country: FR (occurrence: FR)
  Receive Date: 20180921
  Receipt Date: 20181029
  Transmission Date: 20190204
  Serious: Yes (Hospitalization)
  Sender: FDA-Public Use
  Company Number: FR-ELI_LILLY_AND_COMPANY-FR201809005087

PATIENT
  Age: 28 Year
  Sex: Female

DRUGS (10)
  1. LEVEMIR [Suspect]
     Active Substance: INSULIN DETEMIR
     Indication: TYPE 1 DIABETES MELLITUS
     Dosage: 23 IU, DAILY
     Route: 058
  2. FOLIC ACID. [Concomitant]
     Active Substance: FOLIC ACID
     Indication: PROPHYLAXIS
     Dosage: UNK UNK, UNKNOWN
     Route: 065
     Dates: start: 201701, end: 20171127
  3. VITAMIN B12 [Concomitant]
     Active Substance: CYANOCOBALAMIN
     Indication: PROPHYLAXIS
     Dosage: UNK UNK, UNKNOWN
     Route: 065
     Dates: start: 20171127, end: 20171227
  4. LANTUS [Suspect]
     Active Substance: INSULIN GLARGINE
     Indication: TYPE 1 DIABETES MELLITUS
     Dosage: 20 IU, DAILY
     Route: 058
     Dates: end: 20171127
  5. LEVEMIR [Suspect]
     Active Substance: INSULIN DETEMIR
     Dosage: 11 IU, DAILY
     Route: 058
  6. NOVORAPID [Suspect]
     Active Substance: INSULIN ASPART
     Indication: TYPE 1 DIABETES MELLITUS
     Dosage: 60 IU, DAILY
     Route: 058
     Dates: start: 2006
  7. NOVORAPID [Suspect]
     Active Substance: INSULIN ASPART
     Dosage: 57 IU, DAILY
     Route: 058
  8. IRON [Concomitant]
     Active Substance: IRON
     Indication: PROPHYLAXIS
     Dosage: UNK UNK, UNKNOWN
     Route: 065
     Dates: start: 20171127
  9. ERGOCALCIFEROL. [Concomitant]
     Active Substance: ERGOCALCIFEROL
     Indication: PROPHYLAXIS
     Dosage: UNK UNK, UNKNOWN
     Route: 065
     Dates: start: 20171127
  10. INSULIN GLARGINE [Suspect]
     Active Substance: INSULIN GLARGINE
     Indication: TYPE 1 DIABETES MELLITUS
     Dosage: 20 IU, DAILY
     Route: 058
     Dates: start: 2006, end: 20171127

REACTIONS (1)
  - Exposure during pregnancy [Recovered/Resolved]
